FAERS Safety Report 5166338-8 (Version None)
Quarter: 2006Q4

REPORT INFORMATION
  Report Type: 
  Country: None (occurrence: None)
  Receive Date: 20061124
  Receipt Date: 20061115
  Transmission Date: 20070319
  Serious: Yes (Other)
  Sender: FDA-Public Use
  Company Number: 200410510BBE

PATIENT
  Sex: Female

DRUGS (3)
  1. HYPRHO-D [Suspect]
     Indication: PREGNANCY
  2. INJECTABLE GLOBULIN (IMMUNOGLOBULIN HUMAN NORMAL) [Suspect]
  3. INJECTABLE GLOBULIN (IMMUNOGLOBULIN HUMAN NORMAL) [Suspect]

REACTIONS (1)
  - ADVERSE EVENT [None]
